FAERS Safety Report 9316641 (Version 2)
Quarter: 2013Q2

REPORT INFORMATION
  Report Type: Spontaneous
  Country: IE (occurrence: None)
  Receive Date: 20130128
  Receipt Date: 20130417
  Transmission Date: 20140414
  Serious: Yes (Other)
  Sender: FDA-Public Use
  Company Number: 1552654

PATIENT
  Age: 31 Year
  Sex: Male
  Weight: 74.6 kg

DRUGS (2)
  1. GEMCITABINE HYDROCHLORIDE [Suspect]
     Indication: TESTIS CANCER
     Route: 041
     Dates: start: 20120904
  2. GEMCITABINE HYDROCHLORIDE [Suspect]
     Route: 042
     Dates: start: 20120904

REACTIONS (2)
  - Pain in extremity [None]
  - Infusion related reaction [None]
